FAERS Safety Report 18508896 (Version 13)
Quarter: 2021Q3

REPORT INFORMATION
  Report Type: Report from Study
  Country: None (occurrence: NL)
  Receive Date: 20201117
  Receipt Date: 20210805
  Transmission Date: 20211014
  Serious: Yes (Hospitalization, Other)
  Sender: FDA-Public Use
  Company Number: NL-ABBVIE-20K-114-3652004-00

PATIENT
  Sex: Female

DRUGS (21)
  1. DUODOPA [Suspect]
     Active Substance: CARBIDOPA\LEVODOPA
     Dosage: MD: 0ML, CND: 2.6ML/H, END: 4.0ML, GOES TO 24 HOURS
     Route: 050
  2. DUODOPA [Suspect]
     Active Substance: CARBIDOPA\LEVODOPA
     Dosage: MD: 3.0ML, CD: 6.0ML/H ED: 4.0ML, CND: 2.6 ML/HR, END: 2.0 ML, REMAINS AT 24 HOURS
     Route: 050
  3. DUODOPA [Suspect]
     Active Substance: CARBIDOPA\LEVODOPA
     Dosage: MD 3.0 ML, CD 6.0 ML/H, ED 4.0 ML, CND 2.6 ML/H, END 2.0 ML
     Route: 050
  4. DUODOPA [Suspect]
     Active Substance: CARBIDOPA\LEVODOPA
     Indication: PARKINSON^S DISEASE
     Dosage: MD: 13.0ML, CD: 4.7ML/H, ED: 4.0ML, REMAINS AT 16 HOURS
     Route: 050
     Dates: start: 20190116
  5. DUODOPA [Suspect]
     Active Substance: CARBIDOPA\LEVODOPA
     Dosage: MD: 3.0ML, CD: 5.1, ED: 4.0, CND: 2.6, END: 2.0, REMAINS AT 24 HOURS
     Route: 050
  6. DUODOPA [Suspect]
     Active Substance: CARBIDOPA\LEVODOPA
     Dosage: MD 2.0 ML, CD 6.0 ML/H, ED 4.0 ML, CND 2.6 ML/H, END 2.0 ML, REMAINS AT 24 HOURS
     Route: 050
  7. DUODOPA [Suspect]
     Active Substance: CARBIDOPA\LEVODOPA
     Dosage: MD: 3.0 ML, CD: 6.2 ML/H, ED: 4.0 ML?REMAINS AT 24 HOURS
     Route: 050
  8. MACROGOL [Concomitant]
     Active Substance: POLYETHYLENE GLYCOLS
     Indication: ABNORMAL FAECES
  9. DUODOPA [Suspect]
     Active Substance: CARBIDOPA\LEVODOPA
     Dosage: MD 3.0 ML, CD 6.3 ML/H, ED 4.0 ML ; END:2.0ML CND:2.6ML/H
     Route: 050
  10. DUODOPA [Suspect]
     Active Substance: CARBIDOPA\LEVODOPA
     Dosage: MD: 13.0ML, CD: 4.9ML/H, ED: 4.0ML, REMAINS AT 16 HOURS
     Route: 050
  11. DUODOPA [Suspect]
     Active Substance: CARBIDOPA\LEVODOPA
     Dosage: MD: 13ML, CD: 5.1ML/H, ED: 4.0ML, REMAINS AT 24 HOURS
     Route: 050
  12. DUODOPA [Suspect]
     Active Substance: CARBIDOPA\LEVODOPA
     Dosage: MD: 12.0ML, CD: 5.1ML/H ED: 4.0ML, CND: 2.6 ML/HR, END: 3.0 ML, REMAINS AT 24 HOURS
     Route: 050
  13. DUODOPA [Suspect]
     Active Substance: CARBIDOPA\LEVODOPA
     Dosage: MD: 10.5ML, CD: 5.1ML/H ED: 4.0ML, CND: 2.6 ML/HR, END: 2.0 ML, REMAINS AT 24 HOURS
     Route: 050
  14. CALOGEN [Concomitant]
     Indication: PRODUCT USED FOR UNKNOWN INDICATION
     Dosage: DOSE 3 TO 4 TIMES PER DAY.
  15. DUODOPA [Suspect]
     Active Substance: CARBIDOPA\LEVODOPA
     Dosage: MD 3.0 ML, CD 6.1 ML/H, ED 4.0 ML, CND 2.6 ML/H, END 2.0 ML, REMAINS AT 24 HOURS
     Route: 050
  16. MACROGOL [Concomitant]
     Active Substance: POLYETHYLENE GLYCOLS
  17. DUODOPA [Suspect]
     Active Substance: CARBIDOPA\LEVODOPA
     Dosage: MD: 13ML, CD: 4.9ML/H, ED: 4.0ML, GOES TO 24 HOURS
     Route: 050
  18. DUODOPA [Suspect]
     Active Substance: CARBIDOPA\LEVODOPA
     Dosage: MD: 9.0ML, CD: 5.1ML/H ED: 4.0ML, CND: 2.6 ML/HR, END: 2.0 ML, REMAINS AT 24 HOURS
     Route: 050
  19. DUODOPA [Suspect]
     Active Substance: CARBIDOPA\LEVODOPA
     Dosage: MD: 3.0ML, CD: 5.4ML/H ED: 4.0ML, CND: 2.6 ML/HR, END: 2.0 ML, REMAINS AT 24 HOURS
     Route: 050
  20. DUODOPA [Suspect]
     Active Substance: CARBIDOPA\LEVODOPA
     Dosage: MD: 3.0ML, CD: 5.7ML/H ED: 4.0ML, CND: 2.6 ML/HR, END: 2.0 ML, REMAINS AT 24 HOURS
     Route: 050
  21. DUODOPA [Suspect]
     Active Substance: CARBIDOPA\LEVODOPA
     Dosage: MD 3.0 ML, CD 6.2 ML/H, ED 4.0 ML
     Route: 050

REACTIONS (40)
  - Unresponsive to stimuli [Not Recovered/Not Resolved]
  - Anxiety [Recovering/Resolving]
  - Hyperhidrosis [Not Recovered/Not Resolved]
  - Insomnia [Not Recovered/Not Resolved]
  - Drug level decreased [Not Recovered/Not Resolved]
  - Dyspnoea [Not Recovered/Not Resolved]
  - Cognitive disorder [Not Recovered/Not Resolved]
  - Abnormal dreams [Not Recovered/Not Resolved]
  - Unevaluable event [Not Recovered/Not Resolved]
  - Nausea [Not Recovered/Not Resolved]
  - Malaise [Not Recovered/Not Resolved]
  - Dysphonia [Not Recovered/Not Resolved]
  - Therapeutic product effect incomplete [Not Recovered/Not Resolved]
  - Decreased appetite [Unknown]
  - Stoma site haemorrhage [Recovered/Resolved]
  - Wound complication [Not Recovered/Not Resolved]
  - Fistula discharge [Not Recovered/Not Resolved]
  - Hallucination, auditory [Not Recovered/Not Resolved]
  - Loss of personal independence in daily activities [Not Recovered/Not Resolved]
  - Fibroma [Recovering/Resolving]
  - Eating disorder [Not Recovered/Not Resolved]
  - Skin injury [Not Recovered/Not Resolved]
  - Hospitalisation [Recovered/Resolved]
  - On and off phenomenon [Not Recovered/Not Resolved]
  - Medical device site pustule [Recovered/Resolved]
  - Decreased appetite [Not Recovered/Not Resolved]
  - Neuralgia [Not Recovered/Not Resolved]
  - Dyskinesia [Unknown]
  - Device difficult to use [Unknown]
  - Stress [Not Recovered/Not Resolved]
  - Parkinsonism [Not Recovered/Not Resolved]
  - Incorrect dose administered [Not Recovered/Not Resolved]
  - Disinhibition [Not Recovered/Not Resolved]
  - Excessive granulation tissue [Not Recovered/Not Resolved]
  - Stoma site discharge [Not Recovered/Not Resolved]
  - Essential tremor [Not Recovered/Not Resolved]
  - Emotional disorder [Unknown]
  - Device dislocation [Unknown]
  - Posture abnormal [Not Recovered/Not Resolved]
  - Medical device site injury [Not Recovered/Not Resolved]

NARRATIVE: CASE EVENT DATE: 20201015
